FAERS Safety Report 7568199-6 (Version None)
Quarter: 2011Q2

REPORT INFORMATION
  Report Type: 
  Country: None (occurrence: None)
  Receive Date: 20110617
  Receipt Date: 20110608
  Transmission Date: 20111010
  Serious: Yes (Hospitalization, Other)
  Sender: FDA-Public Use
  Company Number: 2011AC000033

PATIENT
  Age: 49 Year
  Sex: Female
  Weight: 92 kg

DRUGS (47)
  1. VICODIN [Concomitant]
  2. LESCOL [Concomitant]
  3. AMOXCILLIN [Concomitant]
  4. ZOLOFT [Concomitant]
  5. IPRATROPIU [Concomitant]
  6. PROTONIX [Concomitant]
  7. KEFLEX [Concomitant]
  8. DIGOXIN [Suspect]
     Indication: CARDIAC FAILURE CONGESTIVE
     Dosage: 0.625 MG;QD;PO
     Route: 048
     Dates: start: 20030101, end: 20030101
  9. ALDACTONE [Concomitant]
  10. FLONASE [Concomitant]
  11. PHENERGAN HCL [Concomitant]
  12. STADOL [Concomitant]
  13. DILAUDID [Concomitant]
  14. SINGULAIR [Concomitant]
  15. ALBUTEROL SULFATE AUTOHALER [Concomitant]
  16. ULTRAM [Concomitant]
  17. PLAVIX [Concomitant]
  18. ZOCOR [Concomitant]
  19. SPIRIVA [Concomitant]
  20. DIGOXIN [Suspect]
     Indication: CARDIAC FAILURE CONGESTIVE
     Dosage: 0.125 MG;QD;PO
     Route: 048
     Dates: start: 20031120, end: 20080501
  21. DIGOXIN [Suspect]
     Indication: CARDIAC FAILURE CONGESTIVE
     Dosage: 0.250 MG;QD;PO
     Route: 048
     Dates: start: 20080501, end: 20091101
  22. LISINOPRIL [Concomitant]
  23. SOMA [Concomitant]
  24. BEXTRA [Concomitant]
  25. CODEINE [Concomitant]
  26. HYDROXYZINE [Concomitant]
  27. REQUIP [Concomitant]
  28. ZOFRAN [Concomitant]
  29. NORFLEX [Concomitant]
  30. NEXIUM [Concomitant]
  31. MEDROL [Concomitant]
  32. ADVAIR DISKUS 100/50 [Concomitant]
  33. TORADOL [Concomitant]
  34. VALIUM [Concomitant]
  35. COREG [Concomitant]
  36. FUROSEMIDE [Concomitant]
  37. XANAX [Concomitant]
  38. MORPHINE [Concomitant]
  39. LORCET-HD [Concomitant]
  40. ZITHROMYCIN [Concomitant]
  41. PROVENTIL [Concomitant]
  42. ANAPROX [Concomitant]
  43. DIGOXIN [Suspect]
     Indication: CARDIAC FAILURE CONGESTIVE
     Dosage: 0.250 MG;QD
     Dates: start: 20020725, end: 20031119
  44. DIGOXIN [Suspect]
     Indication: CARDIOMEGALY
     Dosage: 0.250 MG;QD
     Dates: start: 20020725, end: 20031119
  45. PAXIL [Concomitant]
  46. NASONEX [Concomitant]
  47. TESSALON PEARLES [Concomitant]

REACTIONS (35)
  - TOXICITY TO VARIOUS AGENTS [None]
  - ATRIOVENTRICULAR BLOCK FIRST DEGREE [None]
  - DYSARTHRIA [None]
  - DIARRHOEA [None]
  - COUGH [None]
  - REFUSAL OF TREATMENT BY PATIENT [None]
  - LETHARGY [None]
  - INSOMNIA [None]
  - DIZZINESS [None]
  - TRICUSPID VALVE INCOMPETENCE [None]
  - BACK PAIN [None]
  - INTERVERTEBRAL DISC PROTRUSION [None]
  - ANGINA PECTORIS [None]
  - OSTEOARTHRITIS [None]
  - DEPRESSION [None]
  - CACHEXIA [None]
  - GAIT DISTURBANCE [None]
  - SOMNOLENCE [None]
  - SPEECH DISORDER [None]
  - BRONCHITIS [None]
  - PULMONARY VALVE INCOMPETENCE [None]
  - MYOSITIS [None]
  - FALL [None]
  - CONTUSION [None]
  - MUSCLE STRAIN [None]
  - HEAD INJURY [None]
  - MUSCULAR WEAKNESS [None]
  - EAR PAIN [None]
  - SINUS TACHYCARDIA [None]
  - CORONARY ARTERY STENOSIS [None]
  - HYPOTENSION [None]
  - MITRAL VALVE INCOMPETENCE [None]
  - ANXIETY [None]
  - VOMITING [None]
  - BURSITIS [None]
